FAERS Safety Report 8119687 (Version 7)
Quarter: 2013Q2

REPORT INFORMATION
  Report Type: Report from Study
  Country: KR (occurrence: KR)
  Receive Date: 20110902
  Receipt Date: 20130515
  Transmission Date: 20140414
  Serious: Yes (Hospitalization)
  Sender: FDA-Public Use
  Company Number: KR-PFIZER INC-2011019373

PATIENT
  Age: 61 Year
  Sex: Female
  Weight: 42.3 kg

DRUGS (2)
  1. CRIZOTINIB [Suspect]
     Indication: NON-SMALL CELL LUNG CANCER
     Dosage: 250 MG, 2X/DAY, CONTINUOUS
     Route: 048
     Dates: start: 20101110, end: 20130313
  2. MAGNESIUM OXIDE [Concomitant]
     Indication: CONSTIPATION
     Dosage: 250 MG, 3X/DAY
     Route: 048
     Dates: start: 20101013

REACTIONS (1)
  - Abscess [Not Recovered/Not Resolved]
